FAERS Safety Report 24107947 (Version 3)
Quarter: 2024Q3

REPORT INFORMATION
  Report Type: Report from Study
  Country: LT (occurrence: LT)
  Receive Date: 20240718
  Receipt Date: 20240821
  Transmission Date: 20241016
  Serious: Yes (Hospitalization, Other)
  Sender: VERITY PHARMACEUTICALS
  Company Number: LT-VER-202400005

PATIENT
  Age: 78 Year
  Sex: Male
  Weight: 98 kg

DRUGS (7)
  1. TRIPTORELIN [Suspect]
     Active Substance: TRIPTORELIN
     Indication: Prostate cancer
     Dosage: START DATE: 11-JUL-23
     Route: 058
     Dates: start: 2023, end: 20230711
  2. TRIPTORELIN [Suspect]
     Active Substance: TRIPTORELIN
     Indication: Prostate cancer
     Dosage: START DATE: 20-JAN-23
     Route: 058
     Dates: start: 2023, end: 20230124
  3. SILODOSIN [Concomitant]
     Active Substance: SILODOSIN
     Indication: Benign prostatic hyperplasia
     Dosage: QD
     Route: 048
     Dates: start: 20210504
  4. DRUNILER [Concomitant]
     Indication: Gout
     Dosage: QD
     Route: 048
     Dates: start: 2020
  5. ROSUVASTATIN [Concomitant]
     Active Substance: ROSUVASTATIN\ROSUVASTATIN CALCIUM
     Indication: Dyslipidaemia
     Dosage: QD
     Route: 048
     Dates: start: 2020
  6. NEBIVOLOL [Concomitant]
     Active Substance: NEBIVOLOL
     Indication: Essential hypertension
     Dosage: QD
     Route: 048
     Dates: start: 2010
  7. DICLOFENAC [Concomitant]
     Active Substance: DICLOFENAC
     Indication: Pain
     Dosage: PRN
     Route: 048
     Dates: start: 202012

REACTIONS (1)
  - Nephrolithiasis [Recovered/Resolved]

NARRATIVE: CASE EVENT DATE: 20230120
